FAERS Safety Report 7965265-8 (Version None)
Quarter: 2011Q4

REPORT INFORMATION
  Report Type: 
  Country: None (occurrence: None)
  Receive Date: 20111208
  Receipt Date: 20111128
  Transmission Date: 20120403
  Serious: Yes (Life-Threatening)
  Sender: FDA-Public Use
  Company Number: IR-SANOFI-AVENTIS-2011SA079641

PATIENT
  Age: 68 Year
  Sex: Female

DRUGS (3)
  1. FLUOROURACIL [Concomitant]
     Indication: GASTRIC CANCER
     Route: 065
  2. ELOXATIN [Suspect]
     Indication: GASTRIC CANCER
     Route: 042
     Dates: start: 20111115, end: 20111115
  3. TAXOTERE [Concomitant]
     Indication: GASTRIC CANCER
     Route: 065

REACTIONS (2)
  - PAIN [None]
  - RESPIRATORY DISTRESS [None]
